FAERS Safety Report 6165177-9 (Version None)
Quarter: 2009Q2

REPORT INFORMATION
  Report Type: 
  Country: None (occurrence: None)
  Receive Date: 20090421
  Receipt Date: 20090421
  Transmission Date: 20091009
  Serious: Yes (Other)
  Sender: FDA-Public Use
  Company Number: None

PATIENT
  Sex: Male
  Weight: 98.8842 kg

DRUGS (9)
  1. ERBITUX [Suspect]
     Indication: COLON CANCER
     Dosage: 500 MG Q14D IV
     Route: 042
     Dates: start: 20081015, end: 20090408
  2. FOLFIRI - IRINOTECAN [Concomitant]
  3. FLUOROURACIL [Concomitant]
  4. LEUCOVORIN CALCIUM [Concomitant]
  5. ATROPINE [Concomitant]
  6. DIPHENHYDRAMINE HCL [Concomitant]
  7. ONDANSETRON [Concomitant]
  8. DEXAMETHASONE 4MG TAB [Concomitant]
  9. INTRAVENOUS MAGNESIUM SUPPLEMENTATION [Concomitant]

REACTIONS (1)
  - ULCERATIVE KERATITIS [None]
